FAERS Safety Report 8531664-9 (Version None)
Quarter: 2012Q3

REPORT INFORMATION
  Report Type: 
  Country: None (occurrence: None)
  Receive Date: 20120723
  Receipt Date: 20120710
  Transmission Date: 20120928
  Serious: No
  Sender: FDA-Public Use
  Company Number: US-ASTRAZENECA-2012SE47329

PATIENT
  Sex: Male

DRUGS (3)
  1. ZOMIG [Suspect]
     Indication: MIGRAINE
     Route: 048
  2. IMITREX [Concomitant]
     Indication: MIGRAINE
  3. MIGRAINE MEDICATION [Concomitant]

REACTIONS (3)
  - ASTHENIA [None]
  - INTENTIONAL DRUG MISUSE [None]
  - ARTHRALGIA [None]
